FAERS Safety Report 23775935 (Version 2)
Quarter: 2024Q2

REPORT INFORMATION
  Report Type: Spontaneous
  Country: US (occurrence: US)
  Receive Date: 20240424
  Receipt Date: 20240506
  Transmission Date: 20240716
  Serious: Yes (Life-Threatening, Hospitalization, Disabling, Other)
  Sender: FDA-Public Use
  Company Number: US-009507513-2404USA008462

PATIENT
  Age: 47 Year
  Sex: Female

DRUGS (4)
  1. KEYTRUDA [Suspect]
     Active Substance: PEMBROLIZUMAB
     Indication: Breast cancer stage III
     Dosage: 200 MILLIGRAM, EVERY 3 WEEKS
     Route: 042
     Dates: start: 20231026, end: 20240314
  2. TAXOL [Suspect]
     Active Substance: PACLITAXEL
     Indication: Breast cancer stage III
     Dosage: UNK, WEEKLY
  3. DOXORUBICIN [Suspect]
     Active Substance: DOXORUBICIN
     Indication: Breast cancer stage III
  4. CYTOXAN [Suspect]
     Active Substance: CYCLOPHOSPHAMIDE
     Indication: Breast cancer stage III

REACTIONS (14)
  - Hypotension [Unknown]
  - Clostridium difficile infection [Recovering/Resolving]
  - Encephalitis [Unknown]
  - Toxic encephalopathy [Not Recovered/Not Resolved]
  - Rash [Recovered/Resolved]
  - Walking disability [Unknown]
  - Asthenia [Unknown]
  - Slow speech [Recovering/Resolving]
  - Decreased eye contact [Recovering/Resolving]
  - Tremor [Unknown]
  - Dysarthria [Unknown]
  - Bradykinesia [Unknown]
  - General physical health deterioration [Unknown]
  - Substance-induced psychotic disorder [Unknown]

NARRATIVE: CASE EVENT DATE: 20240101
